FAERS Safety Report 5093827-7 (Version None)
Quarter: 2006Q3

REPORT INFORMATION
  Report Type: 
  Country: None (occurrence: None)
  Receive Date: 20060831
  Receipt Date: 20060626
  Transmission Date: 20061208
  Serious: Yes (Other)
  Sender: FDA-Public Use
  Company Number: NL-BAYER-200612658GDS

PATIENT
  Age: 45 Year
  Sex: Female

DRUGS (9)
  1. AVELON [Suspect]
     Indication: BRONCHOPNEUMONIA
     Dosage: TOTAL DAILY DOSE: 400 MG  UNIT DOSE: 400 MG
     Route: 048
     Dates: start: 20060501, end: 20060601
  2. CALCIUM GLUCONATE [Concomitant]
     Indication: DRUG USE FOR UNKNOWN INDICATION
  3. MAGNESIUM [Concomitant]
     Indication: DRUG USE FOR UNKNOWN INDICATION
  4. MULTIVITAMIN [Concomitant]
     Indication: DRUG USE FOR UNKNOWN INDICATION
  5. ASCORBIC ACID [Concomitant]
     Indication: DRUG USE FOR UNKNOWN INDICATION
  6. ASTHAVENT [Concomitant]
     Indication: ASTHMA
  7. ELTROXIN [Concomitant]
     Indication: HYPOTHYROIDISM
  8. CALCIUM FLUOR [Concomitant]
     Indication: DRUG USE FOR UNKNOWN INDICATION
     Route: 060
  9. FERRUM PHOS [Concomitant]
     Indication: DRUG USE FOR UNKNOWN INDICATION

REACTIONS (7)
  - EYE PAIN [None]
  - MYDRIASIS [None]
  - OCULAR HYPERAEMIA [None]
  - PHOTOPHOBIA [None]
  - THERAPY NON-RESPONDER [None]
  - UVEITIS [None]
  - VISUAL ACUITY REDUCED [None]
